FAERS Safety Report 21458509 (Version 3)
Quarter: 2022Q4

REPORT INFORMATION
  Report Type: Spontaneous
  Country: US (occurrence: US)
  Receive Date: 20221014
  Receipt Date: 20221213
  Transmission Date: 20230113
  Serious: Yes (Other)
  Sender: FDA-Public Use
  Company Number: US-PFIZER INC-PV202200080832

PATIENT
  Age: 50 Year
  Sex: Female

DRUGS (2)
  1. IBRANCE [Suspect]
     Active Substance: PALBOCICLIB
     Dosage: 125 MG
  2. ZOLEDRONIC ACID [Suspect]
     Active Substance: ZOLEDRONIC ACID
     Dosage: 1 DF, MONTHLY
     Dates: end: 20221010

REACTIONS (7)
  - Renal impairment [Unknown]
  - Neutropenia [Unknown]
  - White blood cell count decreased [Unknown]
  - Oral pain [Unknown]
  - Mouth injury [Unknown]
  - Fatigue [Unknown]
  - Gingival pain [Unknown]

NARRATIVE: CASE EVENT DATE: 20220101
